FAERS Safety Report 14482705 (Version 3)
Quarter: 2018Q4

REPORT INFORMATION
  Report Type: Spontaneous
  Country: DE (occurrence: DE)
  Receive Date: 20180203
  Receipt Date: 20181004
  Transmission Date: 20190204
  Serious: Yes (Hospitalization, Other)
  Sender: FDA-Public Use
  Company Number: DE-TEVA-2018-DE-851595

PATIENT
  Age: 38 Year
  Sex: Female
  Weight: 64 kg

DRUGS (11)
  1. IBUPROFEN 600 [Suspect]
     Active Substance: IBUPROFEN
     Indication: BACK PAIN
     Route: 065
  2. IBUPROFEN 600 [Suspect]
     Active Substance: IBUPROFEN
     Indication: EPICONDYLITIS
     Route: 048
     Dates: start: 20161024, end: 20170123
  3. CARMETHIN [Concomitant]
     Indication: DYSPEPSIA
  4. IBUPROFEN 600 [Suspect]
     Active Substance: IBUPROFEN
     Indication: DYSMENORRHOEA
     Route: 065
  5. ORTOTON [Concomitant]
     Indication: HYPOTONIA
     Dosage: AT THE EVENING
     Route: 048
     Dates: end: 20170123
  6. PANTOPRAZOLE SODIUM. [Concomitant]
     Active Substance: PANTOPRAZOLE SODIUM
     Indication: PROPHYLAXIS AGAINST GASTROINTESTINAL ULCER
     Dosage: 20 MILLIGRAM DAILY; AT THE MORNING
     Route: 048
     Dates: end: 20170123
  7. ESMYA [Suspect]
     Active Substance: ULIPRISTAL ACETATE
     Indication: DYSMENORRHOEA
  8. ESMYA [Suspect]
     Active Substance: ULIPRISTAL ACETATE
     Indication: UTERINE LEIOMYOMA
     Dosage: 5 MILLIGRAM DAILY;
     Route: 048
     Dates: start: 201611, end: 20170123
  9. KORODIN [Concomitant]
     Active Substance: CAMPHOR (SYNTHETIC)\MENTHOL
     Indication: FATIGUE
     Dates: start: 20170120, end: 20170122
  10. NOVALGIN (METAMIZOLE SODIUM) [Concomitant]
     Active Substance: METAMIZOLE SODIUM
     Indication: PRODUCT USED FOR UNKNOWN INDICATION
     Dates: start: 20161230, end: 20170123
  11. KORODIN [Concomitant]
     Active Substance: CAMPHOR (SYNTHETIC)\MENTHOL
     Indication: EXERCISE TOLERANCE DECREASED

REACTIONS (11)
  - Blood urine [Recovered/Resolved]
  - Ovarian cyst [Recovered/Resolved]
  - Drug-induced liver injury [Recovered/Resolved]
  - Autoimmune hepatitis [Recovered/Resolved]
  - Hepatic cyst [Recovered/Resolved]
  - Fallopian tube cyst [Recovered/Resolved]
  - Gastrooesophageal reflux disease [Recovered/Resolved]
  - Renal cyst [Recovered/Resolved]
  - Influenza [Recovered/Resolved]
  - Constipation [Recovered/Resolved]
  - Acute hepatic failure [Recovered/Resolved]

NARRATIVE: CASE EVENT DATE: 201612
